FAERS Safety Report 9526517 (Version 1)
Quarter: 2013Q1

REPORT INFORMATION
  Report Type: Spontaneous
  Country: US (occurrence: None)
  Receive Date: 20130305
  Receipt Date: 20130305
  Transmission Date: 20140127
  Serious: Yes (Other)
  Sender: FDA-Public Use
  Company Number: 163-21880-12033550

PATIENT
  Age: 85 Year
  Sex: Female

DRUGS (5)
  1. REVLIMID (LENALIDOMIDE) (CAPSULES) [Suspect]
     Indication: 5Q MINUS SYNDROME
     Dosage: 10 MG, X 28 CAPS, PO
     Route: 048
     Dates: start: 20120314
  2. TYLENOL WITH CODEINE #3 (PANADEINE CO) [Concomitant]
  3. LASIX (FUROSEMIDE) [Concomitant]
  4. IRON (IRON) [Concomitant]
  5. ANTIVERT (ANTIVERTIGO PREPARATIONS) [Concomitant]

REACTIONS (3)
  - Neutrophil count decreased [None]
  - White blood cell count decreased [None]
  - Thrombocytopenia [None]
